FAERS Safety Report 5507440-8 (Version None)
Quarter: 2007Q4

REPORT INFORMATION
  Report Type: 
  Country: None (occurrence: None)
  Receive Date: 20071106
  Receipt Date: 20071030
  Transmission Date: 20080405
  Serious: Yes (Other)
  Sender: FDA-Public Use
  Company Number: BR-ASTRAZENECA-2007UW25284

PATIENT
  Age: 58 Year
  Sex: Female
  Weight: 66 kg

DRUGS (6)
  1. ARIMIDEX [Suspect]
     Indication: BREAST CANCER
     Route: 048
     Dates: start: 20041216
  2. VASOPRIL [Concomitant]
     Indication: HYPERTENSION
     Route: 048
  3. ASPIRIN [Concomitant]
     Route: 048
     Dates: start: 20040101
  4. RIVOTRIL [Concomitant]
     Indication: ANXIETY
     Route: 048
     Dates: start: 20040101
  5. LORAM [Concomitant]
     Indication: INSOMNIA
     Route: 048
     Dates: start: 20040101
  6. AGUA OXIGENADA [Concomitant]
     Dates: start: 20070101

REACTIONS (15)
  - ANAEMIA [None]
  - BONE PAIN [None]
  - BREAST PAIN [None]
  - COUGH [None]
  - DRY SKIN [None]
  - GASTRIC ULCER [None]
  - GINGIVAL INFECTION [None]
  - GINGIVAL OPERATION [None]
  - HORDEOLUM [None]
  - HYPERTENSION [None]
  - LOSS OF LIBIDO [None]
  - NAIL DISORDER [None]
  - PNEUMONIA [None]
  - VULVOVAGINAL DRYNESS [None]
  - WHEEZING [None]
